FAERS Safety Report 20793376 (Version 2)
Quarter: 2022Q3

REPORT INFORMATION
  Report Type: Report from Study
  Country: IL (occurrence: IL)
  Receive Date: 20220506
  Receipt Date: 20220825
  Transmission Date: 20221027
  Serious: Yes (Hospitalization, Other)
  Sender: FDA-Public Use
  Company Number: IL-NOVARTISPH-NVSC2021IL117228

PATIENT
  Age: 64 Year
  Sex: Female

DRUGS (2)
  1. COSENTYX [Suspect]
     Active Substance: SECUKINUMAB
     Indication: Psoriasis
     Dosage: 300 MG, QW
     Route: 058
     Dates: start: 20210404
  2. COSENTYX [Suspect]
     Active Substance: SECUKINUMAB
     Dosage: 300 MG, QMO
     Route: 058

REACTIONS (8)
  - Benign lung neoplasm [Recovering/Resolving]
  - Pneumonia [Not Recovered/Not Resolved]
  - Saliva altered [Not Recovered/Not Resolved]
  - Dysarthria [Unknown]
  - Psoriasis [Recovered/Resolved]
  - Skin lesion [Not Recovered/Not Resolved]
  - Pruritus [Unknown]
  - Decreased activity [Unknown]
